FAERS Safety Report 8252821-5 (Version None)
Quarter: 2012Q2

REPORT INFORMATION
  Report Type: 
  Country: None (occurrence: None)
  Receive Date: 20120402
  Receipt Date: 20111228
  Transmission Date: 20120825
  Serious: No
  Sender: FDA-Public Use
  Company Number: US-ABBOTT-11P-163-0887142-00

PATIENT
  Sex: Male
  Weight: 102.15 kg

DRUGS (5)
  1. ANDROGEL [Suspect]
     Indication: BLOOD TESTOSTERONE DECREASED
     Dates: start: 20070101, end: 20111001
  2. ANDROGEL [Suspect]
     Indication: BLOOD TESTOSTERONE DECREASED
     Dates: start: 20111001, end: 20111101
  3. PROVIGIL [Concomitant]
     Indication: BLOOD TESTOSTERONE DECREASED
  4. ANDROGEL [Suspect]
     Dates: start: 20111201
  5. METHOTREXATE [Concomitant]
     Indication: WEGENER'S GRANULOMATOSIS

REACTIONS (4)
  - ACTIVITIES OF DAILY LIVING IMPAIRED [None]
  - THERAPEUTIC RESPONSE UNEXPECTED [None]
  - ENERGY INCREASED [None]
  - WEGENER'S GRANULOMATOSIS [None]
